FAERS Safety Report 25515778 (Version 1)
Quarter: 2025Q3

REPORT INFORMATION
  Report Type: Spontaneous
  Country: GB (occurrence: GB)
  Receive Date: 20250704
  Receipt Date: 20250704
  Transmission Date: 20251021
  Serious: Yes (Other)
  Sender: RANBAXY
  Company Number: GB-MHRA-MED-202506181650290280-KTFPL

PATIENT
  Age: 21 Year
  Sex: Female

DRUGS (3)
  1. CODEINE [Suspect]
     Active Substance: CODEINE
     Indication: Headache
     Route: 048
     Dates: start: 20250614, end: 20250614
  2. ACETAMINOPHEN [Concomitant]
     Active Substance: ACETAMINOPHEN
     Indication: Headache
     Route: 065
     Dates: start: 20250613, end: 20250618
  3. IBUPROFEN [Concomitant]
     Active Substance: IBUPROFEN
     Indication: Adverse drug reaction
     Route: 065
     Dates: start: 20250613, end: 20250618

REACTIONS (6)
  - Tremor [Recovered/Resolved]
  - Limb reduction defect [Unknown]
  - Malaise [Unknown]
  - Hyperventilation [Unknown]
  - Crying [Unknown]
  - Loss of bladder sensation [Unknown]

NARRATIVE: CASE EVENT DATE: 20250614
